FAERS Safety Report 6019913-2 (Version None)
Quarter: 2008Q4

REPORT INFORMATION
  Report Type: 
  Country: None (occurrence: None)
  Receive Date: 20081223
  Receipt Date: 20081208
  Transmission Date: 20090506
  Serious: Yes (Hospitalization, Other)
  Sender: FDA-Public Use
  Company Number: KV200801011

PATIENT
  Age: 57 Year
  Sex: Male
  Weight: 112.5 kg

DRUGS (18)
  1. ISOSORBIDE MONONITRATE [Suspect]
     Indication: STENT PLACEMENT
     Dosage: 30 MG, QD, ORAL
     Route: 048
  2. LANTUS [Concomitant]
  3. HUMALOG /00030501/ (INSULIN) [Concomitant]
  4. GLUCOPHAGE /00082701/ (METFORMIN) [Concomitant]
  5. ARTHROTEC /00372302/ (DICLOFENAC SODIUM) [Concomitant]
  6. NEURONTIN [Concomitant]
  7. PLAVIX [Concomitant]
  8. ASPIRIN [Concomitant]
  9. XANAX [Concomitant]
  10. METOPROLOL TARTRATE [Concomitant]
  11. ACTOS /01460201/ (PIOGLITAZONE) [Concomitant]
  12. COREG [Concomitant]
  13. ZOLOFT /01011401/ (PIOGLITAZONE) [Concomitant]
  14. JANUVIA (SITAGLIPTIN PHOSPHATE) [Concomitant]
  15. ZETIA [Concomitant]
  16. LASIX [Concomitant]
  17. RAMIPRIL [Concomitant]
  18. CRESTOR [Concomitant]

REACTIONS (3)
  - CORONARY ARTERY OCCLUSION [None]
  - HEART RATE DECREASED [None]
  - PRODUCT QUALITY ISSUE [None]
